FAERS Safety Report 4822356-8 (Version None)
Quarter: 2005Q4

REPORT INFORMATION
  Report Type: 
  Country: None (occurrence: None)
  Receive Date: 20051104
  Receipt Date: 20051024
  Transmission Date: 20060501
  Serious: Yes (Other)
  Sender: FDA-Public Use
  Company Number: B0398374A

PATIENT
  Age: 77 Year
  Sex: Female

DRUGS (9)
  1. AVANDIA [Suspect]
     Dosage: 8 MG/ORAL MONTHS
     Route: 048
  2. GLICLAZIDE [Concomitant]
  3. WARFARIN SODIUM [Concomitant]
  4. ANASTROZOLE [Concomitant]
  5. ISOSORBIDE MONONITRATE [Concomitant]
  6. ATORVASTATIN CALCIUM [Concomitant]
  7. DIGOXIN [Concomitant]
  8. BISOPROLOL [Concomitant]
  9. SPIRONOLACTONE [Concomitant]

REACTIONS (4)
  - AORTIC VALVE INCOMPETENCE [None]
  - AORTIC VALVE STENOSIS [None]
  - CARDIAC FAILURE [None]
  - PULMONARY OEDEMA [None]
